FAERS Safety Report 18130433 (Version 1)
Quarter: 2020Q3

REPORT INFORMATION
  Report Type: Report from Study
  Country: US (occurrence: US)
  Receive Date: 20200810
  Receipt Date: 20200810
  Transmission Date: 20201103
  Serious: Yes (Hospitalization)
  Sender: FDA-Public Use
  Company Number: US-JNJFOC-20200800191

PATIENT
  Age: 72 Year
  Sex: Male
  Weight: 81.27 kg

DRUGS (18)
  1. ABIRATERONE ACETATE. [Suspect]
     Active Substance: ABIRATERONE ACETATE
     Indication: PROSTATE CANCER METASTATIC
     Route: 048
     Dates: start: 20190619, end: 20200219
  2. PREDNISONE. [Suspect]
     Active Substance: PREDNISONE
     Indication: PROSTATE CANCER METASTATIC
     Route: 048
     Dates: start: 20190619, end: 20200219
  3. ELIQUIS [Concomitant]
     Active Substance: APIXABAN
     Dosage: 2 TABLETS BY MOUTH TWICE A DAY FOR 7 DAYS AND THEN 1 TABLET TWICE A DAY
     Route: 048
  4. KLONOPIN [Concomitant]
     Active Substance: CLONAZEPAM
     Route: 048
  5. CYMBALTA [Concomitant]
     Active Substance: DULOXETINE HYDROCHLORIDE
     Route: 048
  6. DURAGESIC [Concomitant]
     Active Substance: FENTANYL
     Dosage: 1 PATCH, EVERY 72 HOURS, ROTATE PLACEMENT OF PATCH EACH APPLICATION
     Route: 062
  7. LASIX [Concomitant]
     Active Substance: FUROSEMIDE
     Route: 048
  8. PERCOCET [Concomitant]
     Active Substance: ACETAMINOPHEN\OXYCODONE HYDROCHLORIDE
     Dosage: DOSE: 10?325 MG
     Route: 048
  9. APALUTAMIDE [Suspect]
     Active Substance: APALUTAMIDE
     Indication: PROSTATE CANCER METASTATIC
     Route: 048
     Dates: start: 20190619, end: 20190621
  10. MEGA MULTIVITAMIN WITH MINERALS [Concomitant]
     Route: 048
  11. ZYLOPRIM [Concomitant]
     Active Substance: ALLOPURINOL
     Route: 048
  12. IBUPROFEN. [Concomitant]
     Active Substance: IBUPROFEN
     Route: 048
  13. LUPRON [Concomitant]
     Active Substance: LEUPROLIDE ACETATE
     Route: 030
  14. ZOLOFT [Concomitant]
     Active Substance: SERTRALINE HYDROCHLORIDE
     Route: 048
  15. DECADRON [Concomitant]
     Active Substance: DEXAMETHASONE
     Dosage: WITH MEALS
     Route: 048
  16. VIBRAMYCIN                         /00055704/ [Concomitant]
     Route: 048
  17. DESYREL [Concomitant]
     Active Substance: TRAZODONE HYDROCHLORIDE
     Route: 048
  18. CALCIUM+D3 [Concomitant]
     Active Substance: CALCIUM\CHOLECALCIFEROL
     Route: 048

REACTIONS (2)
  - Myocardial infarction [Recovered/Resolved]
  - Pneumonia [Recovered/Resolved]

NARRATIVE: CASE EVENT DATE: 20200310
